FAERS Safety Report 23465145 (Version 3)
Quarter: 2024Q1

REPORT INFORMATION
  Report Type: Spontaneous
  Country: JP (occurrence: JP)
  Receive Date: 20240201
  Receipt Date: 20240308
  Transmission Date: 20240410
  Serious: Yes (Other)
  Sender: FDA-Public Use
  Company Number: JP-ELI_LILLY_AND_COMPANY-JP202401013880AA

PATIENT
  Age: 93 Year
  Sex: Female

DRUGS (1)
  1. EVISTA [Suspect]
     Active Substance: RALOXIFENE HYDROCHLORIDE
     Indication: Osteoporosis postmenopausal
     Dosage: 60 MG, DAILY
     Route: 048
     Dates: end: 20240130

REACTIONS (1)
  - Atrial fibrillation [Unknown]
